FAERS Safety Report 4360223-7 (Version None)
Quarter: 2004Q2

REPORT INFORMATION
  Report Type: 
  Country: None (occurrence: None)
  Receive Date: 20040513
  Receipt Date: 20040429
  Transmission Date: 20050107
  Serious: Yes (Other)
  Sender: FDA-Public Use
  Company Number: 2004-BP-03382YA

PATIENT
  Age: 57 Year
  Sex: Male

DRUGS (2)
  1. FLOMAX [Suspect]
     Indication: BENIGN PROSTATIC HYPERPLASIA
     Dosage: 0.4 MG PO
     Route: 048
     Dates: start: 20040101, end: 20040319
  2. CITALOPRAM [Concomitant]

REACTIONS (1)
  - SUICIDAL IDEATION [None]
